FAERS Safety Report 17125321 (Version 1)
Quarter: 2019Q4

REPORT INFORMATION
  Report Type: Spontaneous
  Country: GB (occurrence: GB)
  Receive Date: 20191207
  Receipt Date: 20191207
  Transmission Date: 20200122
  Serious: Yes (Death, Life-Threatening, Hospitalization, Other)
  Sender: FDA-Public Use
  Company Number: GB-AUROBINDO-AUR-APL-2019-039410

PATIENT
  Age: 81 Year
  Sex: Female
  Weight: 45 kg

DRUGS (16)
  1. BRALTUS [Concomitant]
     Active Substance: TIOTROPIUM BROMIDE
     Indication: CHRONIC OBSTRUCTIVE PULMONARY DISEASE
     Dosage: 10 MICROGRAM, DAILY
     Route: 065
     Dates: start: 201903
  2. DIGOXIN. [Concomitant]
     Active Substance: DIGOXIN
     Indication: ATRIAL FIBRILLATION
     Dosage: 125 MICROGRAM, DAILY
     Route: 048
     Dates: start: 201906
  3. ADCAL D3 [Concomitant]
     Active Substance: CALCIUM CARBONATE\CHOLECALCIFEROL
     Dosage: 2 DOSAGE FORM, ONCE A DAY
     Route: 048
     Dates: start: 201906
  4. APIXABAN [Suspect]
     Active Substance: APIXABAN
     Indication: TRANSIENT ISCHAEMIC ATTACK
     Dosage: 10 MILLIGRAM, DAILY
     Route: 048
  5. ZOPICLONE [Concomitant]
     Active Substance: ZOPICLONE
     Indication: INSOMNIA
     Dosage: 7.5 MILLIGRAM, DAILY AT NIGHT
     Route: 048
     Dates: start: 201903
  6. HYDROMOL [Concomitant]
     Indication: DERMATITIS
     Dosage: 2 DOSAGE FORM, ONCE A DAY
     Route: 061
     Dates: start: 201902
  7. ATORVASTATIN [Concomitant]
     Active Substance: ATORVASTATIN
     Indication: TRANSIENT ISCHAEMIC ATTACK
     Dosage: 20 MILLIGRAM, ONCE A DAY
     Route: 048
     Dates: start: 201811
  8. DUORESP SPIROMAX [Concomitant]
     Active Substance: BUDESONIDE\FORMOTEROL
     Indication: CHRONIC OBSTRUCTIVE PULMONARY DISEASE
     Dosage: 2 DOSAGE FORM, DAILY (320/9)
     Route: 055
     Dates: start: 201903
  9. ALENDRONIC ACID [Concomitant]
     Active Substance: ALENDRONIC ACID
     Indication: SPINAL COMPRESSION FRACTURE
     Dosage: 70 MILLIGRAM, EVERY WEEK
     Route: 048
     Dates: start: 201906
  10. CARVEDILOL. [Concomitant]
     Active Substance: CARVEDILOL
     Indication: CARDIAC PACEMAKER INSERTION
     Dosage: 12.5 MILLIGRAM, DAILY
     Route: 048
     Dates: start: 201811
  11. PARACETAMOL [Concomitant]
     Active Substance: ACETAMINOPHEN
     Indication: PAIN
     Dosage: 2000 MILLIGRAM, DAILY
     Route: 065
  12. AQUEOUS [Concomitant]
     Indication: PRODUCT USED FOR UNKNOWN INDICATION
     Dosage: 1 DOSAGE FORM AS NECESSARY
     Route: 061
     Dates: start: 201902
  13. CLOPIDOGREL [Suspect]
     Active Substance: CLOPIDOGREL BISULFATE
     Indication: TRANSIENT ISCHAEMIC ATTACK
     Dosage: 75 MILLIGRAM, DAILY (14 DAY COURSE)
     Route: 048
  14. ADCAL D3 [Concomitant]
     Active Substance: CALCIUM CARBONATE\CHOLECALCIFEROL
     Indication: SPINAL COMPRESSION FRACTURE
     Dosage: UNK, TT DAILY
     Route: 065
  15. OMEPRAZOLE. [Concomitant]
     Active Substance: OMEPRAZOLE
     Indication: DYSPEPSIA
     Dosage: 20 MILLIGRAM, DAILY
     Route: 048
     Dates: start: 201903
  16. PARACETAMOL [Concomitant]
     Active Substance: ACETAMINOPHEN
     Dosage: 4 GRAM, ONCE A DAY
     Route: 048
     Dates: start: 201902

REACTIONS (7)
  - Hydrocephalus [Unknown]
  - Basal ganglia haemorrhage [Fatal]
  - Brain oedema [Unknown]
  - Hypoaesthesia [Unknown]
  - Intracranial pressure increased [Unknown]
  - Haemorrhage intracranial [Fatal]
  - Cerebral ventricle dilatation [Unknown]

NARRATIVE: CASE EVENT DATE: 20190610
